FAERS Safety Report 10304800 (Version 2)
Quarter: 2014Q3

REPORT INFORMATION
  Report Type: Spontaneous
  Country: BE (occurrence: BE)
  Receive Date: 20140715
  Receipt Date: 20140715
  Transmission Date: 20150326
  Serious: Yes (Other)
  Sender: FDA-Public Use
  Company Number: BE-JNJFOC-20130706529

PATIENT
  Age: 20 Year
  Sex: Female

DRUGS (5)
  1. METHYLPREDNISOLONE [Concomitant]
     Active Substance: METHYLPREDNISOLONE
     Route: 048
     Dates: start: 201212
  2. METHOTREXATE [Concomitant]
     Active Substance: METHOTREXATE
     Route: 065
  3. METHYLPREDNISOLONE [Concomitant]
     Active Substance: METHYLPREDNISOLONE
     Dosage: 1G/J
     Route: 048
     Dates: start: 201208
  4. METHYLPREDNISOLONE [Concomitant]
     Active Substance: METHYLPREDNISOLONE
     Route: 048
     Dates: start: 201307
  5. REMICADE [Suspect]
     Active Substance: INFLIXIMAB
     Indication: SUSAC^S SYNDROME
     Dosage: EVERY 2 MONTHS
     Route: 042
     Dates: start: 201303

REACTIONS (3)
  - Osteonecrosis [Unknown]
  - Spinal compression fracture [Unknown]
  - Off label use [Unknown]

NARRATIVE: CASE EVENT DATE: 201305
